FAERS Safety Report 20173565 (Version 2)
Quarter: 2022Q1

REPORT INFORMATION
  Report Type: Spontaneous
  Country: US (occurrence: US)
  Receive Date: 20211212
  Receipt Date: 20220124
  Transmission Date: 20220423
  Serious: Yes (Other)
  Sender: FDA-Public Use
  Company Number: US-BEH-2021139082

PATIENT
  Age: 60 Year
  Sex: Male

DRUGS (2)
  1. HIZENTRA [Suspect]
     Active Substance: HUMAN IMMUNOGLOBULIN G
     Indication: Immunodeficiency common variable
     Dosage: 20 GRAM, QOW
     Route: 058
     Dates: start: 202111
  2. HIZENTRA [Suspect]
     Active Substance: HUMAN IMMUNOGLOBULIN G
     Indication: Primary immunodeficiency syndrome
     Dosage: UNK, QOW
     Route: 058
     Dates: start: 20211217

REACTIONS (7)
  - Nephrolithiasis [Not Recovered/Not Resolved]
  - Flank pain [Not Recovered/Not Resolved]
  - Dysuria [Not Recovered/Not Resolved]
  - Tooth infection [Unknown]
  - Pneumonia [Unknown]
  - No adverse event [Unknown]
  - Product preparation issue [Unknown]

NARRATIVE: CASE EVENT DATE: 20211201
